FAERS Safety Report 5679967-X (Version None)
Quarter: 2008Q1

REPORT INFORMATION
  Report Type: 
  Country: None (occurrence: None)
  Receive Date: 20080326
  Receipt Date: 20080314
  Transmission Date: 20080703
  Serious: Yes (Other)
  Sender: FDA-Public Use
  Company Number: IT-RANBAXY-2008RR-13821

PATIENT

DRUGS (1)
  1. RANITIDINA RANBAXY 300 MG COMPRESSE RIVESTITE CON FILM [Suspect]

REACTIONS (5)
  - DYSPNOEA [None]
  - FACE OEDEMA [None]
  - LIP OEDEMA [None]
  - PRURITUS GENERALISED [None]
  - RASH [None]
